FAERS Safety Report 5506553-4 (Version None)
Quarter: 2007Q4

REPORT INFORMATION
  Report Type: 
  Country: None (occurrence: None)
  Receive Date: 20071105
  Receipt Date: 20071026
  Transmission Date: 20080405
  Serious: Yes (Other)
  Sender: FDA-Public Use
  Company Number: B0493622A

PATIENT
  Age: 70 Year
  Sex: Female

DRUGS (1)
  1. REQUIP [Suspect]
     Indication: BASAL GANGLION DEGENERATION

REACTIONS (4)
  - AGGRESSION [None]
  - CONFUSIONAL STATE [None]
  - CRYING [None]
  - TREMOR [None]
